FAERS Safety Report 4825670-5 (Version None)
Quarter: 2005Q4

REPORT INFORMATION
  Report Type: 
  Country: None (occurrence: None)
  Receive Date: 20051111
  Receipt Date: 20051031
  Transmission Date: 20060501
  Serious: Yes (Hospitalization, Other)
  Sender: FDA-Public Use
  Company Number: DE-MERCK-0511DEU00012

PATIENT
  Sex: Male

DRUGS (2)
  1. VIOXX [Suspect]
     Indication: SPINAL DISORDER
     Route: 048
     Dates: start: 20020701
  2. LEVOTHYROXINE SODIUM [Concomitant]
     Route: 048

REACTIONS (3)
  - GASTROINTESTINAL HAEMORRHAGE [None]
  - HYPERTENSION [None]
  - MYOCARDIAL INFARCTION [None]
